FAERS Safety Report 18170546 (Version 1)
Quarter: 2020Q3

REPORT INFORMATION
  Report Type: Spontaneous
  Country: US (occurrence: US)
  Receive Date: 20200819
  Receipt Date: 20200819
  Transmission Date: 20201103
  Serious: No
  Sender: FDA-Public Use
  Company Number: US-JNJFOC-20200818753

PATIENT
  Age: 62 Year
  Sex: Female

DRUGS (2)
  1. SIMPONI [Suspect]
     Active Substance: GOLIMUMAB
     Indication: PRODUCT USED FOR UNKNOWN INDICATION
     Dosage: 50/0.5ML
     Route: 058
     Dates: start: 201712
  2. SIMPONI [Suspect]
     Active Substance: GOLIMUMAB
     Route: 058

REACTIONS (3)
  - Off label use [Unknown]
  - Inappropriate schedule of product administration [Unknown]
  - Product use issue [Unknown]

NARRATIVE: CASE EVENT DATE: 201712
